FAERS Safety Report 9621629 (Version 2)
Quarter: 2013Q4

REPORT INFORMATION
  Report Type: Spontaneous
  Country: US (occurrence: US)
  Receive Date: 20131015
  Receipt Date: 20131015
  Transmission Date: 20140711
  Serious: No
  Sender: FDA-Public Use
  Company Number: US-PURDUE-USA-2011-0072836

PATIENT
  Sex: Male

DRUGS (2)
  1. BUTRANS [Suspect]
     Indication: PRODUCT USED FOR UNKNOWN INDICATION
     Dosage: 10 MCG, Q1H
     Route: 062
  2. ANTIDEPRESSANTS [Concomitant]

REACTIONS (5)
  - Inadequate analgesia [Unknown]
  - Hyperhidrosis [Unknown]
  - Product adhesion issue [Recovered/Resolved]
  - Mood swings [Unknown]
  - Agitation [Unknown]
